FAERS Safety Report 5072710-7 (Version None)
Quarter: 2006Q3

REPORT INFORMATION
  Report Type: 
  Country: None (occurrence: None)
  Receive Date: 20060807
  Receipt Date: 20060731
  Transmission Date: 20061208
  Serious: Yes (Hospitalization)
  Sender: FDA-Public Use
  Company Number: FR-AVENTIS-200612692FR

PATIENT
  Age: 1 Month
  Sex: Female

DRUGS (2)
  1. RIFADIN [Suspect]
     Indication: TUBERCULOSIS
  2. RIMIFON [Suspect]
     Indication: TUBERCULOSIS

REACTIONS (3)
  - ANAEMIA [None]
  - HAEMOGLOBIN DECREASED [None]
  - RETICULOCYTE COUNT INCREASED [None]
